FAERS Safety Report 9336787 (Version 1)
Quarter: 2013Q2

REPORT INFORMATION
  Report Type: Spontaneous
  Country: ES (occurrence: ES)
  Receive Date: 20130607
  Receipt Date: 20130607
  Transmission Date: 20140414
  Serious: Yes (Hospitalization)
  Sender: FDA-Public Use
  Company Number: PHHY2013ES056529

PATIENT
  Age: 82 Year
  Sex: Female

DRUGS (4)
  1. SINTROM [Suspect]
     Indication: ATRIAL FIBRILLATION
     Dosage: UNK UKN, QD
     Route: 048
     Dates: end: 20130503
  2. DIGOXIN [Suspect]
     Indication: ATRIAL FIBRILLATION
     Dosage: UNK UKN, QD
     Route: 048
     Dates: end: 20130503
  3. CITALOPRAM [Suspect]
     Indication: DEPRESSION
     Dates: end: 20130503
  4. ACETYLSALICYLIC ACID [Suspect]
     Indication: CEREBROVASCULAR ACCIDENT
     Dosage: 100 MG, ONCE DAILY
     Route: 048
     Dates: end: 20130503

REACTIONS (1)
  - Extradural haematoma [Not Recovered/Not Resolved]
